APPROVED DRUG PRODUCT: PRECEF
Active Ingredient: CEFORANIDE
Strength: 1GM/VIAL
Dosage Form/Route: INJECTABLE;INJECTION
Application: A062579 | Product #002
Applicant: APOTHECON INC DIV BRISTOL MYERS SQUIBB
Approved: Nov 26, 1984 | RLD: No | RS: No | Type: DISCN